FAERS Safety Report 15396984 (Version 1)
Quarter: 2018Q3

REPORT INFORMATION
  Report Type: Spontaneous
  Country: US (occurrence: US)
  Receive Date: 20180918
  Receipt Date: 20180918
  Transmission Date: 20181010
  Serious: No
  Sender: FDA-Public Use
  Company Number: US-IMPAX LABORATORIES, INC-2018-IPXL-02432

PATIENT
  Age: 59 Year
  Sex: Female

DRUGS (2)
  1. BUDESONIDE. [Suspect]
     Active Substance: BUDESONIDE
     Indication: SINUS DISORDER
     Dosage: UNK
     Route: 045
  2. BUDESONIDE. [Suspect]
     Active Substance: BUDESONIDE
     Dosage: 1 VIAL, DAILY AS A RINSE
     Route: 045
     Dates: start: 201807, end: 20180713

REACTIONS (3)
  - Liquid product physical issue [Unknown]
  - Rhinalgia [Recovered/Resolved]
  - Administration site pain [Unknown]

NARRATIVE: CASE EVENT DATE: 201807
